FAERS Safety Report 24964033 (Version 1)
Quarter: 2025Q1

REPORT INFORMATION
  Report Type: Spontaneous
  Country: US (occurrence: US)
  Receive Date: 20250213
  Receipt Date: 20250213
  Transmission Date: 20250409
  Serious: Yes (Other)
  Sender: ABBVIE
  Company Number: US-ABBVIE-6125057

PATIENT
  Sex: Female

DRUGS (29)
  1. HUMIRA [Suspect]
     Active Substance: ADALIMUMAB
     Indication: Product used for unknown indication
     Route: 058
  2. HUMIRA [Suspect]
     Active Substance: ADALIMUMAB
     Route: 058
  3. COAL TAR [Concomitant]
     Active Substance: COAL TAR
     Indication: Product used for unknown indication
  4. NEUTROGENA T/GEL DAILY 2 IN 1 [Concomitant]
     Indication: Product used for unknown indication
  5. CALCIUM [Concomitant]
     Active Substance: CALCIUM
     Indication: Product used for unknown indication
  6. ALENDRONATE [Concomitant]
     Active Substance: ALENDRONATE SODIUM
     Indication: Product used for unknown indication
  7. FLUOCINONIDE [Concomitant]
     Active Substance: FLUOCINONIDE
     Indication: Product used for unknown indication
  8. GABAPENTIN [Concomitant]
     Active Substance: GABAPENTIN
     Indication: Product used for unknown indication
  9. BACLOFEN [Concomitant]
     Active Substance: BACLOFEN
     Indication: Product used for unknown indication
  10. MESALAMINE [Concomitant]
     Active Substance: MESALAMINE
     Indication: Product used for unknown indication
  11. OMEPRAZOLE [Concomitant]
     Active Substance: OMEPRAZOLE
     Indication: Product used for unknown indication
  12. PROBIOTICS NOS [Concomitant]
     Active Substance: PROBIOTICS NOS
     Indication: Product used for unknown indication
  13. VIT E NATURAL [Concomitant]
     Indication: Product used for unknown indication
  14. FISH OIL [Concomitant]
     Active Substance: FISH OIL
     Indication: Product used for unknown indication
  15. VITAMIN D3 [Concomitant]
     Active Substance: CHOLECALCIFEROL
     Indication: Product used for unknown indication
  16. PRAVASTATIN SODIUM [Concomitant]
     Active Substance: PRAVASTATIN SODIUM
     Indication: Product used for unknown indication
  17. GENTEAL TEARS (MILD) [Concomitant]
     Active Substance: DEXTRAN 70\HYPROMELLOSE 2910 (4000 MPA.S)
     Indication: Product used for unknown indication
  18. SERTRALINE HYDROCHLORIDE [Concomitant]
     Active Substance: SERTRALINE HYDROCHLORIDE
     Indication: Product used for unknown indication
  19. ONDANSETRON [Concomitant]
     Active Substance: ONDANSETRON
     Indication: Product used for unknown indication
  20. FIBER THERAPY (CALCIUM POLYCARBOPHIL) [Concomitant]
     Active Substance: CALCIUM POLYCARBOPHIL
     Indication: Product used for unknown indication
  21. SERTRALINE [Concomitant]
     Active Substance: SERTRALINE HYDROCHLORIDE
     Indication: Product used for unknown indication
  22. PRAVASTATIN [Concomitant]
     Active Substance: PRAVASTATIN
     Indication: Product used for unknown indication
  23. TEARS AGAIN [Concomitant]
     Active Substance: POLYVINYL ALCOHOL
     Indication: Product used for unknown indication
  24. VITAMIN E [Concomitant]
     Active Substance: .ALPHA.-TOCOPHEROL
     Indication: Product used for unknown indication
  25. XELJANZ [Suspect]
     Active Substance: TOFACITINIB CITRATE
     Indication: Crohn^s disease
     Route: 048
  26. XELJANZ [Suspect]
     Active Substance: TOFACITINIB CITRATE
     Indication: Crohn^s disease
     Route: 048
  27. XELJANZ [Suspect]
     Active Substance: TOFACITINIB CITRATE
     Indication: Crohn^s disease
     Route: 048
     Dates: start: 202109
  28. XELJANZ [Suspect]
     Active Substance: TOFACITINIB CITRATE
     Indication: Crohn^s disease
     Route: 048
  29. MODERNA COVID-19 VACCINE [Suspect]
     Active Substance: ELASOMERAN
     Indication: COVID-19
     Route: 030

REACTIONS (16)
  - Neuropathy peripheral [Unknown]
  - Crohn^s disease [Recovering/Resolving]
  - Product use in unapproved indication [Unknown]
  - Secretion discharge [Unknown]
  - Insomnia [Unknown]
  - Weight fluctuation [Unknown]
  - Back pain [Unknown]
  - Illness [Unknown]
  - Pain in extremity [Not Recovered/Not Resolved]
  - Balance disorder [Unknown]
  - Fall [Unknown]
  - Pain [Unknown]
  - Nausea [Not Recovered/Not Resolved]
  - Intraocular pressure test abnormal [Recovering/Resolving]
  - Alopecia [Recovering/Resolving]
  - Adverse food reaction [Unknown]
